FAERS Safety Report 13645225 (Version 1)
Quarter: 2017Q2

REPORT INFORMATION
  Report Type: Spontaneous
  Country: US (occurrence: US)
  Receive Date: 20170612
  Receipt Date: 20170612
  Transmission Date: 20170830
  Serious: No
  Sender: FDA-Public Use
  Company Number: US-ROCHE-1301118

PATIENT
  Sex: Female

DRUGS (7)
  1. NORVASC [Concomitant]
     Active Substance: AMLODIPINE BESYLATE
  2. PRILOSEC [Concomitant]
     Active Substance: OMEPRAZOLE MAGNESIUM
  3. MUCINEX [Concomitant]
     Active Substance: GUAIFENESIN
  4. XELODA [Suspect]
     Active Substance: CAPECITABINE
     Indication: CARCINOID SYNDROME
     Dosage: 14 DAYS ON 7 DAYS OFF
     Route: 048
     Dates: start: 20120225
  5. LASIX [Concomitant]
     Active Substance: FUROSEMIDE
  6. XELODA [Suspect]
     Active Substance: CAPECITABINE
     Dosage: TWICE A DAY FOR 14 DAYS ON 7 DAYS OFF FOR EACH
     Route: 048
     Dates: start: 20121116
  7. SIMVASTATIN. [Concomitant]
     Active Substance: SIMVASTATIN

REACTIONS (2)
  - Renal disorder [Unknown]
  - Hepatic pain [Unknown]
